FAERS Safety Report 9534309 (Version 2)
Quarter: 2020Q1

REPORT INFORMATION
  Report Type: Spontaneous
  Country: SI (occurrence: SI)
  Receive Date: 20130918
  Receipt Date: 20200318
  Transmission Date: 20200409
  Serious: Yes (Other)
  Sender: FDA-Public Use
  Company Number: SI-GLAXOSMITHKLINE-B0923267A

PATIENT
  Age: 52 Year
  Sex: Female

DRUGS (2)
  1. DULOXETINE. [Interacting]
     Active Substance: DULOXETINE
     Indication: PRODUCT USED FOR UNKNOWN INDICATION
     Dosage: 90 MG
     Route: 065
  2. BUPROPION. [Suspect]
     Active Substance: BUPROPION
     Indication: PRODUCT USED FOR UNKNOWN INDICATION
     Dosage: 300 MG
     Route: 065

REACTIONS (5)
  - Drug interaction [Unknown]
  - Long QT syndrome [Recovered/Resolved]
  - Palpitations [Unknown]
  - Loss of consciousness [Unknown]
  - Heart rate increased [Unknown]
